FAERS Safety Report 8399979-5 (Version None)
Quarter: 2012Q2

REPORT INFORMATION
  Report Type: 
  Country: None (occurrence: None)
  Receive Date: 20120531
  Receipt Date: 20120517
  Transmission Date: 20120825
  Serious: No
  Sender: FDA-Public Use
  Company Number: US-ASTRAZENECA-2012SE32105

PATIENT
  Sex: Female

DRUGS (2)
  1. NEXIUM [Suspect]
     Indication: ABDOMINAL RIGIDITY
     Route: 048
  2. VITAMIN TAB [Concomitant]

REACTIONS (2)
  - ABDOMINAL DISCOMFORT [None]
  - OFF LABEL USE [None]
